FAERS Safety Report 18514644 (Version 1)
Quarter: 2020Q4

REPORT INFORMATION
  Report Type: Report from Study
  Country: None (occurrence: CO)
  Receive Date: 20201117
  Receipt Date: 20201117
  Transmission Date: 20210114
  Serious: Yes (Hospitalization, Other)
  Sender: FDA-Public Use
  Company Number: CO-ABBVIE-20K-036-3614027-00

PATIENT
  Age: 0 Year
  Sex: Female

DRUGS (1)
  1. SYNAGIS [Suspect]
     Active Substance: PALIVIZUMAB
     Indication: PREMATURE BABY
     Route: 030
     Dates: start: 20200910, end: 20200910

REACTIONS (4)
  - Medical device implantation [Recovering/Resolving]
  - Device leakage [Recovering/Resolving]
  - Bacterial infection [Recovering/Resolving]
  - Head circumference abnormal [Recovering/Resolving]

NARRATIVE: CASE EVENT DATE: 2020
